FAERS Safety Report 6135133-5 (Version None)
Quarter: 2009Q1

REPORT INFORMATION
  Report Type: 
  Country: None (occurrence: None)
  Receive Date: 20090327
  Receipt Date: 20090320
  Transmission Date: 20090719
  Serious: Yes (Other)
  Sender: FDA-Public Use
  Company Number: US-MERCK-0708USA00149

PATIENT
  Age: 54 Year
  Sex: Female
  Weight: 79 kg

DRUGS (1)
  1. FOSAMAX [Suspect]
     Indication: OSTEOPOROSIS
     Route: 048
     Dates: start: 20020130, end: 20060719

REACTIONS (10)
  - ABDOMINAL WALL DISORDER [None]
  - ANXIETY [None]
  - DEPRESSION [None]
  - DYSPHAGIA [None]
  - FUNGAL INFECTION [None]
  - MELANOCYTIC NAEVUS [None]
  - OSTEOMYELITIS [None]
  - OSTEONECROSIS [None]
  - SKIN LESION [None]
  - UMBILICAL MALFORMATION [None]
